FAERS Safety Report 6278709-7 (Version None)
Quarter: 2009Q3

REPORT INFORMATION
  Report Type: 
  Country: None (occurrence: None)
  Receive Date: 20090721
  Receipt Date: 20090715
  Transmission Date: 20100115
  Serious: Yes (Other)
  Sender: FDA-Public Use
  Company Number: A0786971A

PATIENT
  Age: 46 Year
  Sex: Female

DRUGS (1)
  1. ASPIRIN + CAFFEINE + SALICYLAMIDE POWDER (ASPIRIN  +CAFFEINE+SALICYLA) [Suspect]
     Dosage: ORAL
     Route: 048

REACTIONS (11)
  - ABASIA [None]
  - ASTHENIA [None]
  - DRUG INEFFECTIVE [None]
  - FEELING ABNORMAL [None]
  - HEADACHE [None]
  - HYPOAESTHESIA [None]
  - MALAISE [None]
  - PRODUCT QUALITY ISSUE [None]
  - RESTLESSNESS [None]
  - SOMNOLENCE [None]
  - VISUAL IMPAIRMENT [None]
